FAERS Safety Report 22116075 (Version 1)
Quarter: 2023Q1

REPORT INFORMATION
  Report Type: Spontaneous
  Country: US (occurrence: US)
  Receive Date: 20230320
  Receipt Date: 20230320
  Transmission Date: 20230417
  Serious: No
  Sender: FDA-Public Use
  Company Number: US-ALLERGAN-2209962US

PATIENT
  Age: 61 Year
  Sex: Male

DRUGS (1)
  1. OXYBUTYNIN [Suspect]
     Active Substance: OXYBUTYNIN
     Indication: Hot flush
     Dosage: UNK
     Dates: start: 20200715

REACTIONS (3)
  - Fatigue [Unknown]
  - Respiratory disorder [Unknown]
  - SARS-CoV-2 test positive [Unknown]
